FAERS Safety Report 4940319-9 (Version None)
Quarter: 2006Q1

REPORT INFORMATION
  Report Type: 
  Country: None (occurrence: None)
  Receive Date: 20060310
  Receipt Date: 20060228
  Transmission Date: 20060701
  Serious: Yes (Hospitalization)
  Sender: FDA-Public Use
  Company Number: US-MERCK-0603USA00089

PATIENT
  Age: 62 Year
  Sex: Female
  Weight: 86 kg

DRUGS (1)
  1. VIOXX [Suspect]
     Indication: PAIN IN EXTREMITY
     Route: 048
     Dates: start: 20030901, end: 20040901

REACTIONS (3)
  - BLADDER DISORDER [None]
  - CARDIAC VALVE DISEASE [None]
  - MYOCARDIAL INFARCTION [None]
